FAERS Safety Report 14121766 (Version 1)
Quarter: 2017Q4

REPORT INFORMATION
  Report Type: Spontaneous
  Country: US (occurrence: US)
  Receive Date: 20171024
  Receipt Date: 20171024
  Transmission Date: 20180321
  Serious: Yes (Other)
  Sender: FDA-Public Use
  Company Number: US-SA-2017SA202324

PATIENT
  Sex: Male

DRUGS (1)
  1. DUPIXENT [Suspect]
     Active Substance: DUPILUMAB
     Route: 065

REACTIONS (7)
  - Dermatitis [Unknown]
  - Staphylococcal infection [Unknown]
  - Streptococcal infection [Unknown]
  - Drug dose omission [Unknown]
  - Suicidal ideation [Unknown]
  - Eye swelling [Unknown]
  - Rebound effect [Unknown]
